FAERS Safety Report 8131664-7 (Version None)
Quarter: 2012Q1

REPORT INFORMATION
  Report Type: 
  Country: None (occurrence: None)
  Receive Date: 20120207
  Receipt Date: 20120202
  Transmission Date: 20120608
  Serious: Yes (Other)
  Sender: FDA-Public Use
  Company Number: 2012MA001479

PATIENT
  Age: 3 Year
  Sex: Female

DRUGS (1)
  1. IBUPROFEN [Suspect]
     Dosage: 30 ML; X1; PO
     Route: 048
     Dates: start: 20120202

REACTIONS (1)
  - ACCIDENTAL DRUG INTAKE BY CHILD [None]
